FAERS Safety Report 13981609 (Version 2)
Quarter: 2020Q4

REPORT INFORMATION
  Report Type: Other
  Country: US (occurrence: US)
  Receive Date: 20170918
  Receipt Date: 20201019
  Transmission Date: 20210113
  Serious: Yes (Other)
  Sender: FDA-Public Use
  Company Number: US-ROCHE-1994132

PATIENT
  Sex: Male

DRUGS (3)
  1. CELLCEPT [Suspect]
     Active Substance: MYCOPHENOLATE MOFETIL\MYCOPHENOLATE MOFETIL HYDROCHLORIDE
     Dosage: TAKE 2 TABLETS IN AM AND 1 TABLETS IN PM
     Route: 048
  2. CELLCEPT [Suspect]
     Active Substance: MYCOPHENOLATE MOFETIL\MYCOPHENOLATE MOFETIL HYDROCHLORIDE
     Indication: GRANULOMATOSIS WITH POLYANGIITIS
     Route: 048
  3. CELLCEPT [Suspect]
     Active Substance: MYCOPHENOLATE MOFETIL\MYCOPHENOLATE MOFETIL HYDROCHLORIDE
     Indication: GRANULOMATOSIS WITH POLYANGIITIS
     Dosage: BID
     Route: 048

REACTIONS (14)
  - Anaemia [Recovering/Resolving]
  - Leukocytosis [Recovering/Resolving]
  - Fatigue [Unknown]
  - Deafness bilateral [Not Recovered/Not Resolved]
  - Hypoaesthesia [Not Recovered/Not Resolved]
  - Intentional product use issue [Unknown]
  - Hypoacusis [Unknown]
  - Paraesthesia [Not Recovered/Not Resolved]
  - Hypotension [Unknown]
  - Sensory loss [Unknown]
  - Sinus disorder [Unknown]
  - Leukopenia [Unknown]
  - Off label use [Unknown]
  - Oedema peripheral [Unknown]
